FAERS Safety Report 13659210 (Version 1)
Quarter: 2017Q2

REPORT INFORMATION
  Report Type: Spontaneous
  Country: US (occurrence: US)
  Receive Date: 20170616
  Receipt Date: 20170616
  Transmission Date: 20170830
  Serious: No
  Sender: FDA-Public Use
  Company Number: US-TEVA-775331USA

PATIENT
  Sex: Female

DRUGS (1)
  1. COPAXONE [Suspect]
     Active Substance: GLATIRAMER ACETATE
     Dosage: UNKNOWN FORM STRENGTH

REACTIONS (6)
  - Adverse event [Unknown]
  - Rash [Unknown]
  - Drug hypersensitivity [Unknown]
  - Stress [Unknown]
  - Hypersensitivity [Unknown]
  - Drug ineffective [Unknown]
